FAERS Safety Report 7270684-1 (Version None)
Quarter: 2011Q1

REPORT INFORMATION
  Report Type: 
  Country: None (occurrence: None)
  Receive Date: 20110202
  Receipt Date: 20110126
  Transmission Date: 20110831
  Serious: Yes (Disabling)
  Sender: FDA-Public Use
  Company Number: B0682089A

PATIENT
  Sex: Female

DRUGS (10)
  1. LAMICTAL [Suspect]
     Indication: DEPRESSION
     Dosage: 75MG PER DAY
     Route: 048
     Dates: start: 20100908
  2. DEPAKENE [Concomitant]
     Dosage: 100MG PER DAY
     Route: 048
     Dates: start: 20100928
  3. RISPERIDONE [Concomitant]
     Dosage: 3MG PER DAY
     Route: 048
     Dates: start: 20101117
  4. RISPERIDONE [Concomitant]
     Dosage: 1MG PER DAY
     Route: 048
  5. RISPERIDONE [Concomitant]
     Dosage: 2MG PER DAY
     Route: 048
     Dates: start: 20101007
  6. LAMICTAL [Suspect]
     Dosage: 100MG PER DAY
     Route: 048
     Dates: start: 20101119
  7. ZYPREXA [Concomitant]
     Dosage: 10MG PER DAY
     Route: 048
  8. CYMBALTA [Concomitant]
     Dosage: 120MG PER DAY
     Route: 048
  9. FLUNITRAZEPAM [Concomitant]
     Dosage: 2MG PER DAY
     Route: 048
  10. BROTIZOLAM [Concomitant]
     Dosage: .25MG PER DAY
     Route: 048

REACTIONS (6)
  - ANXIETY [None]
  - DISSOCIATION [None]
  - HALLUCINATION [None]
  - FEELING ABNORMAL [None]
  - DELUSION [None]
  - DYSPHONIA [None]
